FAERS Safety Report 5238946-7 (Version None)
Quarter: 2007Q1

REPORT INFORMATION
  Report Type: 
  Country: None (occurrence: None)
  Receive Date: 20070209
  Receipt Date: 20070207
  Transmission Date: 20070707
  Serious: No
  Sender: FDA-Public Use
  Company Number: SP00978

PATIENT
  Age: 57 Year
  Sex: Male
  Weight: 106.5953 kg

DRUGS (1)
  1. VISICOL [Suspect]
     Indication: COLONOSCOPY
     Dosage: 5 GROUPS OF 4 TABS FOLLOWED BY 3 GROUPS OF 4 TABS, ORAL
     Route: 048
     Dates: start: 20060827

REACTIONS (1)
  - ATRIAL FIBRILLATION [None]
